FAERS Safety Report 17890276 (Version 1)
Quarter: 2020Q2

REPORT INFORMATION
  Report Type: Spontaneous
  Country: US (occurrence: US)
  Receive Date: 20200612
  Receipt Date: 20200612
  Transmission Date: 20200714
  Serious: Yes (Hospitalization)
  Sender: FDA-Public Use
  Company Number: NVSC2020US158832

PATIENT
  Sex: Female

DRUGS (1)
  1. TASIGNA [Suspect]
     Active Substance: NILOTINIB
     Indication: CHRONIC MYELOID LEUKAEMIA
     Route: 065

REACTIONS (12)
  - Furuncle [Unknown]
  - Anxiety [Unknown]
  - Dry mouth [Unknown]
  - Diarrhoea [Recovered/Resolved with Sequelae]
  - Bowel movement irregularity [Unknown]
  - Chest pain [Recovered/Resolved with Sequelae]
  - Thirst [Recovered/Resolved]
  - Fatigue [Recovered/Resolved]
  - Headache [Unknown]
  - Nausea [Recovered/Resolved]
  - White blood cell count increased [Unknown]
  - Ear infection [Unknown]
